FAERS Safety Report 15638604 (Version 1)
Quarter: 2018Q4

REPORT INFORMATION
  Report Type: Spontaneous
  Country: US (occurrence: US)
  Receive Date: 20181120
  Receipt Date: 20181120
  Transmission Date: 20190205
  Serious: No
  Sender: FDA-Public Use
  Company Number: US-JNJFOC-20180209902

PATIENT
  Age: 79 Year
  Sex: Female
  Weight: 102 kg

DRUGS (7)
  1. PLAVIX [Concomitant]
     Active Substance: CLOPIDOGREL BISULFATE
  2. LEVOTHYROXINE. [Concomitant]
     Active Substance: LEVOTHYROXINE
  3. IMBRUVICA [Suspect]
     Active Substance: IBRUTINIB
     Indication: CHRONIC LYMPHOCYTIC LEUKAEMIA
     Route: 048
     Dates: start: 20161123
  4. ACYCLOVIR. [Concomitant]
     Active Substance: ACYCLOVIR
  5. FOLIC ACID. [Concomitant]
     Active Substance: FOLIC ACID
  6. MELOXICAM. [Concomitant]
     Active Substance: MELOXICAM
  7. CALCIUM [Concomitant]
     Active Substance: CALCIUM

REACTIONS (1)
  - Bladder spasm [Recovered/Resolved]

NARRATIVE: CASE EVENT DATE: 201801
